FAERS Safety Report 5748596-1 (Version None)
Quarter: 2008Q2

REPORT INFORMATION
  Report Type: 
  Country: None (occurrence: None)
  Receive Date: 20080523
  Receipt Date: 20080516
  Transmission Date: 20081010
  Serious: Yes (Other)
  Sender: FDA-Public Use
  Company Number: US-PFIZER INC-2008043058

PATIENT
  Sex: Female
  Weight: 54.545 kg

DRUGS (1)
  1. DETROL LA [Suspect]
     Route: 048

REACTIONS (1)
  - UTERINE LEIOMYOMA [None]
